FAERS Safety Report 10507192 (Version 1)
Quarter: 2014Q4

REPORT INFORMATION
  Report Type: Spontaneous
  Country: US (occurrence: US)
  Receive Date: 20141009
  Receipt Date: 20141009
  Transmission Date: 20150528
  Serious: Yes (Other)
  Sender: FDA-Public Use
  Company Number: US-PFIZER INC-2014277150

PATIENT
  Age: 79 Year
  Sex: Female

DRUGS (5)
  1. OXYCODONE [Suspect]
     Active Substance: OXYCODONE
     Dosage: UNK
  2. PHENYTOIN. [Suspect]
     Active Substance: PHENYTOIN
     Dosage: UNK
  3. CLOPIDOGREL [Suspect]
     Active Substance: CLOPIDOGREL BISULFATE
     Dosage: UNK
  4. PREDNISONE. [Suspect]
     Active Substance: PREDNISONE
     Dosage: UNK
  5. SIMVASTATIN. [Suspect]
     Active Substance: SIMVASTATIN
     Dosage: UNK

REACTIONS (7)
  - Seizure [Unknown]
  - Impaired driving ability [Unknown]
  - Hypoaesthesia [Unknown]
  - Sleep apnoea syndrome [Unknown]
  - Dysuria [Unknown]
  - Large intestine polyp [Unknown]
  - Gastrooesophageal reflux disease [Unknown]
